FAERS Safety Report 21584572 (Version 2)
Quarter: 2022Q4

REPORT INFORMATION
  Report Type: Spontaneous
  Country: US (occurrence: US)
  Receive Date: 20221111
  Receipt Date: 20221207
  Transmission Date: 20230112
  Serious: Yes (Death, Other)
  Sender: FDA-Public Use
  Company Number: US-GILEAD-2022-0604508

PATIENT
  Age: 39 Year
  Sex: Female
  Weight: 91.8 kg

DRUGS (25)
  1. TECARTUS [Suspect]
     Active Substance: BREXUCABTAGENE AUTOLEUCEL
     Indication: B-cell type acute leukaemia
     Dosage: 68 ML
     Route: 042
     Dates: start: 20221024, end: 20221024
  2. AMBISOME [Concomitant]
     Active Substance: AMPHOTERICIN B
  3. NOREPINEPHRINE [Concomitant]
     Active Substance: NOREPINEPHRINE
     Indication: Hypotension
     Dosage: UNK
     Dates: start: 20221031, end: 20221105
  4. NOREPINEPHRINE [Concomitant]
     Active Substance: NOREPINEPHRINE
     Indication: Cytokine release syndrome
  5. DEXMEDETOMIDINE [Concomitant]
     Active Substance: DEXMEDETOMIDINE
  6. FENTANYL [Concomitant]
     Active Substance: FENTANYL
  7. MIDAZOLAM [Concomitant]
     Active Substance: MIDAZOLAM
  8. SODIUM BICARBONATE [Concomitant]
     Active Substance: SODIUM BICARBONATE
  9. LEVETIRACETAM [Concomitant]
     Active Substance: LEVETIRACETAM
     Indication: Seizure prophylaxis
  10. ACYCLOVIR [Concomitant]
     Active Substance: ACYCLOVIR
  11. MEROPENEM [Concomitant]
     Active Substance: MEROPENEM
  12. VANCOMYCIN [Concomitant]
     Active Substance: VANCOMYCIN
     Route: 042
  13. VANCOMYCIN [Concomitant]
     Active Substance: VANCOMYCIN
     Dosage: UNK
     Route: 048
  14. ROCURONIUM [Concomitant]
     Active Substance: ROCURONIUM BROMIDE
  15. PANTOPRAZOLE [Concomitant]
     Active Substance: PANTOPRAZOLE
  16. SEVELAMER CARBONATE [Concomitant]
     Active Substance: SEVELAMER CARBONATE
  17. FILGRASTIM [Concomitant]
     Active Substance: FILGRASTIM
  18. THIAMINE [Concomitant]
     Active Substance: THIAMINE
  19. LIDOCAINE [Concomitant]
     Active Substance: LIDOCAINE
  20. PROVENTIL [Concomitant]
     Active Substance: ALBUTEROL
  21. DEXTROSE [Concomitant]
     Active Substance: DEXTROSE
  22. SODIUM CHLORIDE [Concomitant]
     Active Substance: SODIUM CHLORIDE
  23. CALCIUM GLUCONATE [Concomitant]
     Active Substance: CALCIUM GLUCONATE
  24. SODIUM CHLORIDE [Concomitant]
     Active Substance: SODIUM CHLORIDE
  25. VITAMIN B-1 [THIAMINE HYDROCHLORIDE] [Concomitant]

REACTIONS (6)
  - Cytokine release syndrome [Fatal]
  - Haemophagocytic lymphohistiocytosis [Fatal]
  - Alanine aminotransferase increased [Fatal]
  - Aspartate aminotransferase increased [Fatal]
  - Mechanical ventilation [Fatal]
  - Acute kidney injury [Unknown]

NARRATIVE: CASE EVENT DATE: 20221025
